FAERS Safety Report 8208508-8 (Version None)
Quarter: 2012Q1

REPORT INFORMATION
  Report Type: 
  Country: None (occurrence: None)
  Receive Date: 20120314
  Receipt Date: 20120308
  Transmission Date: 20120608
  Serious: Yes (Hospitalization)
  Sender: FDA-Public Use
  Company Number: US-BAYER-2012-023261

PATIENT
  Age: 77 Year
  Sex: Male

DRUGS (3)
  1. LEUKINE [Suspect]
     Indication: T-CELL LYMPHOMA
     Dosage: UNK
     Dates: start: 20120131
  2. ANTINEOPLASTIC AGENTS [Suspect]
     Indication: T-CELL LYMPHOMA
     Dosage: UNK
     Dates: start: 20120130
  3. LEUKINE [Suspect]
     Dosage: 13 DAY CYCLE
     Dates: start: 20120221

REACTIONS (11)
  - NAUSEA [None]
  - BONE PAIN [None]
  - VOMITING [None]
  - BLOOD COUNT ABNORMAL [None]
  - RENAL FAILURE [None]
  - THROAT TIGHTNESS [None]
  - HICCUPS [None]
  - BLOOD PRESSURE DECREASED [None]
  - DYSPEPSIA [None]
  - RETCHING [None]
  - HYPOTENSION [None]
